FAERS Safety Report 25329979 (Version 1)
Quarter: 2025Q2

REPORT INFORMATION
  Report Type: Report from Study
  Country: CN (occurrence: CN)
  Receive Date: 20250519
  Receipt Date: 20250519
  Transmission Date: 20250717
  Serious: Yes (Other)
  Sender: ROCHE
  Company Number: CN-ROCHE-10000280531

PATIENT

DRUGS (12)
  1. BEVACIZUMAB [Suspect]
     Active Substance: BEVACIZUMAB
     Indication: Malignant pleural effusion
     Route: 042
  2. BEVACIZUMAB [Suspect]
     Active Substance: BEVACIZUMAB
     Indication: Lung adenocarcinoma
  3. PACLITAXEL [Concomitant]
     Active Substance: PACLITAXEL
     Indication: Malignant pleural effusion
     Route: 065
  4. PACLITAXEL [Concomitant]
     Active Substance: PACLITAXEL
     Indication: Lung adenocarcinoma
  5. CARBOPLATIN [Concomitant]
     Active Substance: CARBOPLATIN
     Indication: Malignant pleural effusion
     Route: 065
  6. CARBOPLATIN [Concomitant]
     Active Substance: CARBOPLATIN
     Indication: Lung adenocarcinoma
  7. CISPLATIN [Concomitant]
     Active Substance: CISPLATIN
     Indication: Malignant pleural effusion
     Route: 065
  8. CISPLATIN [Concomitant]
     Active Substance: CISPLATIN
     Indication: Lung adenocarcinoma
  9. GEMCITABINE [Concomitant]
     Active Substance: GEMCITABINE
     Indication: Malignant pleural effusion
     Route: 065
  10. GEMCITABINE [Concomitant]
     Active Substance: GEMCITABINE
     Indication: Lung adenocarcinoma
  11. PEMETREXED [Concomitant]
     Active Substance: PEMETREXED
     Indication: Malignant pleural effusion
     Route: 065
  12. PEMETREXED [Concomitant]
     Active Substance: PEMETREXED
     Indication: Lung adenocarcinoma

REACTIONS (18)
  - Myelosuppression [Unknown]
  - Gastrointestinal disorder [Unknown]
  - Haemorrhage [Unknown]
  - Hypertension [Unknown]
  - Proteinuria [Unknown]
  - Dizziness [Unknown]
  - Haemoptysis [Unknown]
  - Epistaxis [Unknown]
  - Diarrhoea [Unknown]
  - Hepatic function abnormal [Unknown]
  - Headache [Unknown]
  - Phlebitis [Unknown]
  - Pneumonia [Unknown]
  - Arrhythmia [Unknown]
  - Blood bilirubin increased [Unknown]
  - Deep vein thrombosis [Unknown]
  - Myocardial ischaemia [Unknown]
  - Spleen disorder [Unknown]
